FAERS Safety Report 4760951-5 (Version None)
Quarter: 2005Q3

REPORT INFORMATION
  Report Type: 
  Country: None (occurrence: None)
  Receive Date: 20050901
  Receipt Date: 20050816
  Transmission Date: 20060218
  Serious: Yes (Hospitalization, Other)
  Sender: FDA-Public Use
  Company Number: DSA_70694_2005

PATIENT
  Age: 42 Year
  Sex: Female

DRUGS (4)
  1. BRETHINE [Suspect]
     Indication: TOCOLYSIS
     Dosage: 0.25 MG ONCE SC
     Route: 058
     Dates: start: 20050606, end: 20050606
  2. PRENATAL VITAMINS [Concomitant]
  3. IRON [Concomitant]
  4. VITAMINS B12 [Concomitant]

REACTIONS (6)
  - DRUG EXPOSURE DURING PREGNANCY [None]
  - HYPERHIDROSIS [None]
  - HYPOTENSION [None]
  - OBSTETRIC PROCEDURE COMPLICATION [None]
  - PREMATURE LABOUR [None]
  - VOMITING [None]
